FAERS Safety Report 8507818-4 (Version None)
Quarter: 2012Q3

REPORT INFORMATION
  Report Type: 
  Country: None (occurrence: None)
  Receive Date: 20120713
  Receipt Date: 20120710
  Transmission Date: 20120928
  Serious: Yes (Other)
  Sender: FDA-Public Use
  Company Number: PHHY2012AT030946

PATIENT
  Age: 75 Year
  Sex: Female
  Weight: 72 kg

DRUGS (1)
  1. SPA100A [Suspect]
     Indication: HYPERTENSION
     Dosage: 1 DF, (150/5 MG) DAILY
     Dates: start: 20111017, end: 20111116

REACTIONS (3)
  - PSORIASIS [None]
  - BLOOD PRESSURE INCREASED [None]
  - SKIN PLAQUE [None]
